FAERS Safety Report 10079037 (Version 1)
Quarter: 2014Q2

REPORT INFORMATION
  Report Type: Spontaneous
  Country: US (occurrence: None)
  Receive Date: 20140411
  Receipt Date: 20140411
  Transmission Date: 20141212
  Serious: No
  Sender: FDA-Public Use
  Company Number: None

PATIENT
  Age: 20 Year
  Sex: Female
  Weight: 71.67 kg

DRUGS (1)
  1. MIRENA [Suspect]
     Indication: CONTRACEPTION
     Route: 015
     Dates: start: 20140224, end: 20140410

REACTIONS (12)
  - Abdominal pain [None]
  - Increased appetite [None]
  - Weight increased [None]
  - Mood swings [None]
  - Fatigue [None]
  - Depression [None]
  - Anxiety [None]
  - Ovarian cyst [None]
  - Haemorrhage [None]
  - Back pain [None]
  - Pelvic pain [None]
  - Device dislocation [None]
